FAERS Safety Report 17506297 (Version 4)
Quarter: 2021Q2

REPORT INFORMATION
  Report Type: Other
  Country: US (occurrence: US)
  Receive Date: 20200306
  Receipt Date: 20210526
  Transmission Date: 20210716
  Serious: Yes (Hospitalization, Other)
  Sender: FDA-Public Use
  Company Number: US-ROCHE-2445189

PATIENT
  Age: 69 Year
  Sex: Female

DRUGS (2)
  1. OCREVUS [Suspect]
     Active Substance: OCRELIZUMAB
     Indication: PRIMARY PROGRESSIVE MULTIPLE SCLEROSIS
     Dosage: ONGOING:YES
     Route: 042
     Dates: start: 20180927
  2. OCREVUS [Suspect]
     Active Substance: OCRELIZUMAB
     Indication: MULTIPLE SCLEROSIS
     Dosage: MOST RECENT TREATMENT WAS ON 04/OCT/2019
     Route: 042
     Dates: start: 20190404

REACTIONS (8)
  - Chronic obstructive pulmonary disease [Unknown]
  - Breast cancer [Recovering/Resolving]
  - Atrial fibrillation [Unknown]
  - Upper respiratory tract infection [Unknown]
  - Urinary tract infection [Unknown]
  - Alopecia [Not Recovered/Not Resolved]
  - Fall [Unknown]
  - Pneumonia [Recovered/Resolved]

NARRATIVE: CASE EVENT DATE: 20190404
